FAERS Safety Report 15825818 (Version 1)
Quarter: 2019Q1

REPORT INFORMATION
  Report Type: Report from Study
  Country: CA (occurrence: CA)
  Receive Date: 20190115
  Receipt Date: 20190115
  Transmission Date: 20190417
  Serious: Yes (Other)
  Sender: FDA-Public Use
  Company Number: CA-GLAXOSMITHKLINE-CA2018GSK189259

PATIENT
  Age: 64 Year
  Sex: Female

DRUGS (2)
  1. NUCALA [Suspect]
     Active Substance: MEPOLIZUMAB
     Indication: ASTHMA
     Dosage: 100 MG, Z
     Route: 042
     Dates: start: 20181017
  2. SALBUTAMOL SULPHATE [Suspect]
     Active Substance: ALBUTEROL SULFATE
     Indication: PRODUCT USED FOR UNKNOWN INDICATION
     Dosage: 2 PUFF(S), PRN
     Route: 055

REACTIONS (10)
  - Pain in extremity [Unknown]
  - Arthralgia [Unknown]
  - Asthma [Unknown]
  - Drug effect incomplete [Unknown]
  - Fall [Unknown]
  - Pruritus [Unknown]
  - Arthritis [Unknown]
  - Synovial cyst [Unknown]
  - Condition aggravated [Unknown]
  - Lung infection [Unknown]

NARRATIVE: CASE EVENT DATE: 201808
